FAERS Safety Report 9351480 (Version 3)
Quarter: 2014Q2

REPORT INFORMATION
  Report Type: Spontaneous
  Country: TR (occurrence: TR)
  Receive Date: 20130617
  Receipt Date: 20140422
  Transmission Date: 20141212
  Serious: Yes (Other)
  Sender: FDA-Public Use
  Company Number: TR-PFIZER INC-2013176288

PATIENT
  Age: 43 Year
  Sex: Male

DRUGS (5)
  1. ZIPRASIDONE HCL [Suspect]
     Indication: SCHIZOPHRENIA
     Dosage: 40 MG, DAILY
  2. ZIPRASIDONE HCL [Interacting]
     Dosage: 80 MG, DAILY
  3. QUETIAPINE FUMARATE [Interacting]
     Dosage: 200 MG, DAILY AS NEEDED
  4. METFORMIN [Interacting]
     Indication: DIABETES MELLITUS
     Dosage: 2000 MG, DAILY
     Dates: start: 2006
  5. RANITIDINE [Concomitant]
     Indication: GASTRIC ULCER
     Dosage: 50 MG, DAILY

REACTIONS (3)
  - Drug interaction [Recovered/Resolved]
  - Priapism [Recovered/Resolved]
  - Drug level increased [Unknown]
